FAERS Safety Report 22641977 (Version 1)
Quarter: 2023Q2

REPORT INFORMATION
  Report Type: Spontaneous
  Country: RO (occurrence: RO)
  Receive Date: 20230626
  Receipt Date: 20230626
  Transmission Date: 20230722
  Serious: Yes (Other)
  Sender: FDA-Public Use
  Company Number: RO-AMGEN-ROUSP2023106533

PATIENT
  Age: 64 Year
  Sex: Male

DRUGS (7)
  1. VECTIBIX [Suspect]
     Active Substance: PANITUMUMAB
     Indication: Colorectal cancer metastatic
     Dosage: 6 MILLIGRAM/KILOGRAM, Q2WK (14 DAYS INTERVAL)
     Route: 042
     Dates: start: 202002
  2. IRINOTECAN [Suspect]
     Active Substance: IRINOTECAN
     Indication: Colorectal cancer metastatic
     Dosage: 180 MILLIGRAM/SQ. METER, Q2WK (90 MINUTES DAY 1)
     Route: 042
     Dates: start: 202002
  3. LEUCOVORIN CALCIUM [Suspect]
     Active Substance: LEUCOVORIN CALCIUM
     Indication: Colorectal cancer metastatic
     Dosage: 400 MILLIGRAM/SQ. METER, Q2WK (90 MIN DAY 1)
     Route: 042
     Dates: start: 202002
  4. FLUOROURACIL [Suspect]
     Active Substance: FLUOROURACIL
     Indication: Colorectal cancer metastatic
     Dosage: 400 MILLIGRAM/SQ. METER (DAY 1)
     Route: 042
     Dates: start: 202002
  5. FLUOROURACIL [Suspect]
     Active Substance: FLUOROURACIL
     Dosage: 2400 MILLIGRAM/SQ. METER, Q2WK IN 46 HOURS CONTINUOUS PEV
     Route: 042
  6. OXALIPLATIN [Suspect]
     Active Substance: OXALIPLATIN
     Indication: Colorectal cancer metastatic
     Dosage: 130 MILLIGRAM/SQ. METER IN 2 HOURS, DAY 1, Q3WK
     Route: 042
     Dates: start: 201912, end: 202005
  7. CAPECITABINE [Suspect]
     Active Substance: CAPECITABINE
     Indication: Colorectal cancer metastatic
     Dosage: 1000 MILLIGRAM/SQ. METER, Q2WK 2/DAY ORAL, 14 DAYS
     Route: 048
     Dates: start: 201912, end: 202005

REACTIONS (6)
  - Myocardial ischaemia [Unknown]
  - Neuropathy peripheral [Unknown]
  - Skin toxicity [Unknown]
  - Arrhythmia supraventricular [Unknown]
  - Obesity [Unknown]
  - Intestinal transit time abnormal [Unknown]

NARRATIVE: CASE EVENT DATE: 20200301
